FAERS Safety Report 6134839-1 (Version None)
Quarter: 2009Q1

REPORT INFORMATION
  Report Type: 
  Country: None (occurrence: None)
  Receive Date: 20090327
  Receipt Date: 20090313
  Transmission Date: 20090719
  Serious: Yes (Hospitalization)
  Sender: FDA-Public Use
  Company Number: FR-CELGENEUS-056-20785-09031407

PATIENT
  Age: 56 Year
  Sex: Female

DRUGS (8)
  1. THALIDOMIDE [Suspect]
     Indication: MULTIPLE MYELOMA
     Route: 048
     Dates: start: 20080807, end: 20080827
  2. THALIDOMIDE [Suspect]
     Route: 048
     Dates: start: 20080828
  3. VELCADE [Suspect]
     Indication: MULTIPLE MYELOMA
     Route: 051
     Dates: start: 20080807, end: 20080818
  4. VELCADE [Suspect]
     Route: 051
     Dates: start: 20080828, end: 20080908
  5. CYCLOPHOSPHAMIDE [Suspect]
     Indication: MULTIPLE MYELOMA
     Route: 051
     Dates: start: 20080807, end: 20080904
  6. BACTRIM [Suspect]
     Indication: TOXIC SKIN ERUPTION
     Route: 065
  7. ALLOPURINOL [Suspect]
     Indication: TOXIC SKIN ERUPTION
     Route: 065
  8. DEXAMETHASONE [Suspect]
     Indication: MULTIPLE MYELOMA
     Route: 048
     Dates: start: 20080807, end: 20080908

REACTIONS (1)
  - TOXIC SKIN ERUPTION [None]
